FAERS Safety Report 16259145 (Version 2)
Quarter: 2019Q2

REPORT INFORMATION
  Report Type: Spontaneous
  Country: DE (occurrence: DE)
  Receive Date: 20190501
  Receipt Date: 20190520
  Transmission Date: 20190711
  Serious: Yes (Hospitalization, Other)
  Sender: FDA-Public Use
  Company Number: DE-CELLTRION INC.-2019DE020464

PATIENT

DRUGS (11)
  1. ACETAZOLAMID [Concomitant]
     Active Substance: ACETAZOLAMIDE
     Dosage: 250 MG, 2X/DAY
     Route: 048
  2. IBUPROFEN. [Concomitant]
     Active Substance: IBUPROFEN
     Dosage: 600 MG, 3X/DAY
     Route: 048
  3. PANTOPRAZOLE [Concomitant]
     Active Substance: PANTOPRAZOLE
     Dosage: 40 MG, 1X/DAY
     Route: 048
  4. PAROXETINE. [Concomitant]
     Active Substance: PAROXETINE
     Dosage: 20 MG, 1.5-0-0
  5. ARIPIPRAZOL [Concomitant]
     Active Substance: ARIPIPRAZOLE
     Dosage: 15 MG, 2-0-0
     Route: 048
  6. ARIPIPRAZOLE. [Concomitant]
     Active Substance: ARIPIPRAZOLE
     Dosage: 15 MG, 2-0-0
     Route: 048
  7. PAROXETIN [PAROXETINE] [Concomitant]
     Active Substance: PAROXETINE
     Dosage: 20 MG, 1.5-0-0
  8. INFLECTRA [Suspect]
     Active Substance: INFLIXIMAB-DYYB
     Indication: COLITIS ULCERATIVE
     Dosage: 825 MG, AFTER SATURATION WEEK 0,2, AND 6- EVERY 8 WEEKS
     Route: 042
     Dates: start: 201710, end: 20190128
  9. BISOPROLOL [Concomitant]
     Active Substance: BISOPROLOL
     Dosage: 2.5 MG, 1X/DAY
     Route: 048
  10. QUETIAPIN [Concomitant]
     Active Substance: QUETIAPINE
     Dosage: 25 MG, 2-0-1
     Route: 048
  11. MESALAZIN [Concomitant]
     Active Substance: MESALAMINE
     Dosage: 1.5 G, 2X/DAY
     Route: 048

REACTIONS (4)
  - Diplopia [Recovered/Resolved]
  - Neurosarcoidosis [Unknown]
  - Sarcoidosis [Unknown]
  - Headache [Recovered/Resolved]

NARRATIVE: CASE EVENT DATE: 20190314
